FAERS Safety Report 4946539-1 (Version None)
Quarter: 2006Q1

REPORT INFORMATION
  Report Type: 
  Country: None (occurrence: None)
  Receive Date: 20060317
  Receipt Date: 20020419
  Transmission Date: 20060701
  Serious: Yes (Other)
  Sender: FDA-Public Use
  Company Number: US-GLAXOSMITHKLINE-A0366526A

PATIENT
  Age: 85 Year
  Sex: Female

DRUGS (3)
  1. PAXIL [Suspect]
     Indication: DEPRESSION
     Dosage: 20MG UNKNOWN
     Route: 048
     Dates: start: 19990101, end: 20000101
  2. DYAZIDE [Suspect]
     Indication: DRUG USE FOR UNKNOWN INDICATION
     Route: 065
  3. COMPAZINE [Suspect]

REACTIONS (12)
  - ADVERSE EVENT [None]
  - AMNESIA [None]
  - BEDRIDDEN [None]
  - BLOOD PRESSURE FLUCTUATION [None]
  - DISABILITY [None]
  - DRUG TOXICITY [None]
  - HEPATITIS [None]
  - JOINT SWELLING [None]
  - MENINGITIS BACTERIAL [None]
  - RASH [None]
  - ROAD TRAFFIC ACCIDENT [None]
  - TREMOR [None]
